FAERS Safety Report 5609768-X (Version None)
Quarter: 2008Q1

REPORT INFORMATION
  Report Type: 
  Country: None (occurrence: None)
  Receive Date: 20080131
  Receipt Date: 20071126
  Transmission Date: 20080703
  Serious: No
  Sender: FDA-Public Use
  Company Number: US-BAYER-200713925BCC

PATIENT
  Age: 88 Year
  Sex: Female
  Weight: 90 kg

DRUGS (7)
  1. ALEVE [Suspect]
     Indication: ARTHRITIS
     Route: 048
     Dates: start: 20060101
  2. FOLIC ACID [Concomitant]
  3. ENALAPRIL [Concomitant]
  4. VITAMIN D WITH CALCIUM [Concomitant]
  5. ONE-A-DAY WOMEN'S [Concomitant]
  6. OCUVITE [Concomitant]
  7. FISH OIL [Concomitant]

REACTIONS (1)
  - ARTHRITIS [None]
